FAERS Safety Report 25971186 (Version 1)
Quarter: 2025Q4

REPORT INFORMATION
  Report Type: Spontaneous
  Country: CN (occurrence: CN)
  Receive Date: 20251028
  Receipt Date: 20251028
  Transmission Date: 20260117
  Serious: Yes (Hospitalization)
  Sender: NOVARTIS
  Company Number: CN-002147023-NVSC2025CN164206

PATIENT
  Age: 36 Year
  Sex: Male
  Weight: 65 kg

DRUGS (4)
  1. OCTREOTIDE ACETATE [Suspect]
     Active Substance: OCTREOTIDE ACETATE
     Indication: Pancreatitis acute
     Dosage: 0.1 MG, Q8H
     Route: 065
     Dates: start: 20240517, end: 20240522
  2. OCTREOTIDE ACETATE [Suspect]
     Active Substance: OCTREOTIDE ACETATE
  3. OCTREOTIDE ACETATE [Suspect]
     Active Substance: OCTREOTIDE ACETATE
  4. ULINASTATIN [Suspect]
     Active Substance: ULINASTATIN
     Indication: Pancreatitis acute
     Dosage: 100000 UNITS, Q8H
     Route: 065

REACTIONS (2)
  - Abdominal pain upper [Unknown]
  - Off label use [Unknown]

NARRATIVE: CASE EVENT DATE: 20240517
